FAERS Safety Report 7994881-2 (Version None)
Quarter: 2011Q4

REPORT INFORMATION
  Report Type: 
  Country: None (occurrence: None)
  Receive Date: 20111220
  Receipt Date: 20111208
  Transmission Date: 20120403
  Serious: Yes (Hospitalization)
  Sender: FDA-Public Use
  Company Number: FR-ROCHE-1020555

PATIENT
  Age: 37 Year
  Sex: Male

DRUGS (4)
  1. OFLOXACIN [Concomitant]
     Route: 042
     Dates: start: 20110807, end: 20110821
  2. ROCEPHIN [Suspect]
     Indication: PRODUCT USED FOR UNKNOWN INDICATION
     Route: 042
     Dates: start: 20110807, end: 20110808
  3. AUGMENTIN [Concomitant]
     Route: 042
     Dates: start: 20090805, end: 20090810
  4. AMIKACIN [Concomitant]
     Route: 042
     Dates: start: 20090810, end: 20090813

REACTIONS (3)
  - DERMATITIS EXFOLIATIVE [None]
  - EOSINOPHILIA [None]
  - SKIN TEST POSITIVE [None]
